FAERS Safety Report 23904483 (Version 2)
Quarter: 2024Q3

REPORT INFORMATION
  Report Type: Spontaneous
  Country: US (occurrence: US)
  Receive Date: 20240527
  Receipt Date: 20240701
  Transmission Date: 20241017
  Serious: No
  Sender: IPSEN
  Company Number: US-IPSEN Group, Research and Development-2024-10145

PATIENT
  Age: 52 Year
  Sex: Male

DRUGS (4)
  1. SOMATULINE DEPOT [Suspect]
     Active Substance: LANREOTIDE ACETATE
     Indication: Acromegaly
     Dosage: 90 MG/ 0.3 ML
     Route: 058
     Dates: start: 20181003
  2. MELOXICAM [Concomitant]
     Active Substance: MELOXICAM
  3. VITAMIN A [Concomitant]
     Active Substance: VITAMIN A
     Dosage: CAP 10000UNT
  4. VITAMIN D3 [Concomitant]
     Active Substance: CHOLECALCIFEROL
     Dosage: CAP 1000UNIT

REACTIONS (2)
  - Off label use [Unknown]
  - Diarrhoea [Unknown]

NARRATIVE: CASE EVENT DATE: 20181003
